FAERS Safety Report 21510376 (Version 1)
Quarter: 2022Q4

REPORT INFORMATION
  Report Type: Report from Study
  Country: NL (occurrence: NL)
  Receive Date: 20221026
  Receipt Date: 20221026
  Transmission Date: 20230113
  Serious: Yes (Hospitalization, Other)
  Sender: FDA-Public Use
  Company Number: NL-GILEAD-2022-0602667

PATIENT

DRUGS (1)
  1. SACITUZUMAB GOVITECAN [Suspect]
     Active Substance: SACITUZUMAB GOVITECAN
     Indication: Product used for unknown indication
     Dosage: UNK, COURSE 1B
     Route: 065

REACTIONS (2)
  - Metastases to central nervous system [Unknown]
  - Febrile neutropenia [Recovered/Resolved]
